FAERS Safety Report 11169724 (Version 2)
Quarter: 2019Q1

REPORT INFORMATION
  Report Type: Spontaneous
  Country: DE (occurrence: DE)
  Receive Date: 20150606
  Receipt Date: 20190130
  Transmission Date: 20190417
  Serious: Yes (Hospitalization)
  Sender: FDA-Public Use
  Company Number: DE-ACCORD-031302

PATIENT
  Age: 71 Year
  Sex: Male

DRUGS (7)
  1. EZETIMIBE. [Concomitant]
     Active Substance: EZETIMIBE
     Indication: MYOCARDIAL ISCHAEMIA
     Route: 048
  2. SIMVASTATIN. [Suspect]
     Active Substance: SIMVASTATIN
     Indication: MYOCARDIAL ISCHAEMIA
     Dosage: RESTARTING SIMVASTATIN AT A DAILY DOSE OF 40 MG
     Route: 048
  3. QUINAPRIL. [Concomitant]
     Active Substance: QUINAPRIL
     Indication: MYOCARDIAL ISCHAEMIA
  4. HYDROCHLOROTHIAZIDE. [Concomitant]
     Active Substance: HYDROCHLOROTHIAZIDE
     Indication: MYOCARDIAL ISCHAEMIA
  5. AMLODIPINE [Concomitant]
     Active Substance: AMLODIPINE BESYLATE
     Indication: MYOCARDIAL ISCHAEMIA
  6. BISOPROLOL [Concomitant]
     Active Substance: BISOPROLOL
     Indication: MYOCARDIAL ISCHAEMIA
  7. ACETYLSALICYLIC ACID [Concomitant]
     Active Substance: ASPIRIN
     Indication: MYOCARDIAL ISCHAEMIA

REACTIONS (2)
  - Eczema [Recovered/Resolved]
  - Photosensitivity reaction [Recovered/Resolved]
